FAERS Safety Report 17264382 (Version 1)
Quarter: 2020Q1

REPORT INFORMATION
  Report Type: Spontaneous
  Country: US (occurrence: US)
  Receive Date: 20200113
  Receipt Date: 20200113
  Transmission Date: 20200409
  Serious: Yes (Hospitalization, Other)
  Sender: FDA-Public Use
  Company Number: US-PURDUE-USA-2020-0149544

PATIENT
  Age: 44 Year
  Sex: Female

DRUGS (6)
  1. DILAUDID [Suspect]
     Active Substance: HYDROMORPHONE HYDROCHLORIDE
     Indication: FIBROMYALGIA
  2. DILAUDID [Suspect]
     Active Substance: HYDROMORPHONE HYDROCHLORIDE
     Indication: PAIN
  3. BUTRANS [Concomitant]
     Active Substance: BUPRENORPHINE
     Indication: FIBROMYALGIA
  4. BUTRANS [Concomitant]
     Active Substance: BUPRENORPHINE
     Indication: PAIN
  5. DILAUDID [Suspect]
     Active Substance: HYDROMORPHONE HYDROCHLORIDE
     Indication: BACK PAIN
     Dosage: 2 MG, Q4- 6H
     Route: 048
  6. BUTRANS [Concomitant]
     Active Substance: BUPRENORPHINE
     Indication: BACK PAIN
     Dosage: 10 MCG/HR, WEEKLY
     Route: 062

REACTIONS (3)
  - Liver transplant [Recovered/Resolved]
  - Abdominal pain upper [Recovered/Resolved]
  - Pain [Recovered/Resolved]

NARRATIVE: CASE EVENT DATE: 20191203
